FAERS Safety Report 24169940 (Version 1)
Quarter: 2024Q3

REPORT INFORMATION
  Report Type: Spontaneous
  Country: CA (occurrence: CA)
  Receive Date: 20240803
  Receipt Date: 20240803
  Transmission Date: 20241016
  Serious: No
  Sender: ROCHE
  Company Number: CA-ROCHE-10000047048

PATIENT
  Sex: Female

DRUGS (1)
  1. OCREVUS [Suspect]
     Active Substance: OCRELIZUMAB
     Indication: Multiple sclerosis
     Route: 042

REACTIONS (2)
  - Nasopharyngitis [Recovered/Resolved]
  - Influenza [Recovered/Resolved]
